FAERS Safety Report 7112315-7 (Version None)
Quarter: 2010Q4

REPORT INFORMATION
  Report Type: 
  Country: None (occurrence: None)
  Receive Date: 20101119
  Receipt Date: 20100716
  Transmission Date: 20110411
  Serious: No
  Sender: FDA-Public Use
  Company Number: A0869243A

PATIENT
  Age: 86 Year
  Sex: Male

DRUGS (7)
  1. AVODART [Suspect]
     Dosage: .5MG PER DAY
     Route: 048
     Dates: start: 20100401, end: 20100708
  2. LANOXIN [Concomitant]
  3. RYTHMOL [Concomitant]
  4. LYRICA [Concomitant]
  5. ASPIRIN [Concomitant]
  6. PLAVIX [Concomitant]
  7. UNKNOWN MEDICATION [Concomitant]
     Indication: MICTURITION DISORDER

REACTIONS (3)
  - BREAST PAIN [None]
  - BREAST SWELLING [None]
  - BREAST TENDERNESS [None]
